FAERS Safety Report 22083298 (Version 2)
Quarter: 2023Q4

REPORT INFORMATION
  Report Type: Other
  Country: US (occurrence: None)
  Receive Date: 20230310
  Receipt Date: 20231114
  Transmission Date: 20240109
  Serious: Yes (Hospitalization, Disabling, Other)
  Sender: FDA-Public Use
  Company Number: US-ROCHE-3302421

PATIENT
  Age: 36 Year
  Sex: Female
  Weight: 252.8 kg

DRUGS (6)
  1. EVRYSDI [Suspect]
     Active Substance: RISDIPLAM
     Indication: Spinal muscular atrophy
     Dosage: FORMULATION: 0.75 MG/ML
     Route: 048
     Dates: start: 20210616, end: 20221227
  2. EVRYSDI [Suspect]
     Active Substance: RISDIPLAM
  3. AUGMENTIN [Concomitant]
     Active Substance: AMOXICILLIN\CLAVULANATE POTASSIUM
     Dosage: 875-125 MG/TABLET
     Route: 048
     Dates: start: 20210502
  4. EPINEPHRINE [Concomitant]
     Active Substance: EPINEPHRINE
     Dates: start: 20201216
  5. MELOXICAM [Concomitant]
     Active Substance: MELOXICAM
     Route: 048
  6. OXYBUTYNIN [Concomitant]
     Active Substance: OXYBUTYNIN
     Route: 048
     Dates: start: 20210211, end: 20210211

REACTIONS (5)
  - Diverticulitis [Not Recovered/Not Resolved]
  - Asthenia [Unknown]
  - Paralysis [Unknown]
  - Fistula [Not Recovered/Not Resolved]
  - Abscess [Not Recovered/Not Resolved]
